FAERS Safety Report 20561561 (Version 6)
Quarter: 2023Q2

REPORT INFORMATION
  Report Type: Spontaneous
  Country: CA (occurrence: CA)
  Receive Date: 20220307
  Receipt Date: 20230420
  Transmission Date: 20230721
  Serious: Yes (Other)
  Sender: FDA-Public Use
  Company Number: CA-009507513-2203CAN000824

PATIENT
  Sex: Female

DRUGS (207)
  1. DIPROSONE [Suspect]
     Active Substance: BETAMETHASONE DIPROPIONATE
     Indication: Product used for unknown indication
     Dosage: UNK, DOSAGE FORM: NOT SPECIFIED
     Route: 065
  2. DIPROSONE [Suspect]
     Active Substance: BETAMETHASONE DIPROPIONATE
     Dosage: UNK, DOSAGE FORM: NOT SPECIFIED
     Route: 065
  3. DIPROSONE [Suspect]
     Active Substance: BETAMETHASONE DIPROPIONATE
     Dosage: UNK
     Route: 065
  4. DIPROSONE [Suspect]
     Active Substance: BETAMETHASONE DIPROPIONATE
     Dosage: UNK
     Route: 065
  5. ZOCOR [Suspect]
     Active Substance: SIMVASTATIN
     Indication: Product used for unknown indication
     Dosage: UNK
     Route: 065
  6. ZOCOR [Suspect]
     Active Substance: SIMVASTATIN
     Dosage: UNK
     Route: 065
  7. ZOCOR [Suspect]
     Active Substance: SIMVASTATIN
     Dosage: UNK
     Route: 065
  8. INVANZ [Suspect]
     Active Substance: ERTAPENEM SODIUM
     Indication: Product used for unknown indication
     Dosage: UNK
     Route: 065
  9. INVANZ [Suspect]
     Active Substance: ERTAPENEM SODIUM
     Dosage: UNK
     Route: 065
  10. ACETAMINOPHEN [Suspect]
     Active Substance: ACETAMINOPHEN
     Indication: Product used for unknown indication
     Dosage: UNK, DOSAGE FORM: NOT SPECIFIED
     Route: 065
  11. ACETAMINOPHEN [Suspect]
     Active Substance: ACETAMINOPHEN
     Dosage: UNK
     Route: 065
  12. ALPRAZOLAM [Suspect]
     Active Substance: ALPRAZOLAM
     Indication: Product used for unknown indication
     Dosage: UNK
     Route: 065
  13. ALPRAZOLAM [Suspect]
     Active Substance: ALPRAZOLAM
     Dosage: UNK
     Route: 065
  14. ALPRAZOLAM [Suspect]
     Active Substance: ALPRAZOLAM
     Dosage: UNK
     Route: 065
  15. ATORVASTATIN CALCIUM [Suspect]
     Active Substance: ATORVASTATIN CALCIUM
     Indication: Product used for unknown indication
     Dosage: UNK, DOSAGE FORM: NOT SPECIFIED
     Route: 065
  16. ATORVASTATIN CALCIUM [Suspect]
     Active Substance: ATORVASTATIN CALCIUM
     Dosage: UNK
     Route: 065
  17. ATORVASTATIN CALCIUM [Suspect]
     Active Substance: ATORVASTATIN CALCIUM
     Dosage: UNK
     Route: 065
  18. AMOXICILLIN TRIHYDRATE [Suspect]
     Active Substance: AMOXICILLIN
     Indication: Product used for unknown indication
     Dosage: UNK
     Route: 065
  19. AMOXICILLIN TRIHYDRATE [Suspect]
     Active Substance: AMOXICILLIN
     Dosage: UNK
     Route: 065
  20. AMOXICILLIN TRIHYDRATE [Suspect]
     Active Substance: AMOXICILLIN
     Dosage: UNK
     Route: 065
  21. ATROPINE SULFATE\DIPHENOXYLATE HYDROCHLORIDE [Suspect]
     Active Substance: ATROPINE SULFATE\DIPHENOXYLATE HYDROCHLORIDE
     Indication: Product used for unknown indication
     Dosage: UNK
     Route: 048
  22. ATROPINE SULFATE\DIPHENOXYLATE HYDROCHLORIDE [Suspect]
     Active Substance: ATROPINE SULFATE\DIPHENOXYLATE HYDROCHLORIDE
     Dosage: UNK
     Route: 048
  23. ATROPINE SULFATE\DIPHENOXYLATE HYDROCHLORIDE [Suspect]
     Active Substance: ATROPINE SULFATE\DIPHENOXYLATE HYDROCHLORIDE
     Dosage: UNK
     Route: 065
  24. ATROPINE SULFATE\DIPHENOXYLATE HYDROCHLORIDE [Suspect]
     Active Substance: ATROPINE SULFATE\DIPHENOXYLATE HYDROCHLORIDE
     Dosage: UNK
     Route: 065
  25. FLUTICASONE FUROATE [Suspect]
     Active Substance: FLUTICASONE FUROATE
     Indication: Product used for unknown indication
     Dosage: UNK; DOSAGE FORM: SPRAY, METERED DOSE
     Route: 065
  26. AZITHROMYCIN DIHYDRATE [Suspect]
     Active Substance: AZITHROMYCIN DIHYDRATE
     Indication: Product used for unknown indication
     Dosage: UNK
     Route: 065
  27. AZITHROMYCIN DIHYDRATE [Suspect]
     Active Substance: AZITHROMYCIN DIHYDRATE
     Dosage: UNK
     Route: 065
  28. BACTRIM [Suspect]
     Active Substance: SULFAMETHOXAZOLE\TRIMETHOPRIM
     Indication: Product used for unknown indication
     Dosage: UNK, DOSAGE FORM: NOT SPECIFIED
     Route: 065
  29. BETAMETHASONE VALERATE [Suspect]
     Active Substance: BETAMETHASONE VALERATE
     Indication: Product used for unknown indication
     Dosage: UNK
     Route: 065
  30. BETAMETHASONE VALERATE [Suspect]
     Active Substance: BETAMETHASONE VALERATE
     Dosage: UNK
     Route: 065
  31. BETAMETHASONE VALERATE [Suspect]
     Active Substance: BETAMETHASONE VALERATE
     Dosage: UNK
     Route: 065
  32. BIAXIN [Suspect]
     Active Substance: CLARITHROMYCIN
     Indication: Product used for unknown indication
     Dosage: UNK
     Route: 065
  33. BIAXIN [Suspect]
     Active Substance: CLARITHROMYCIN
     Dosage: UNK
     Route: 065
  34. BISACODYL [Suspect]
     Active Substance: BISACODYL
     Indication: Product used for unknown indication
     Dosage: UNK, DOSAGE FORM: NOT SPECIFIED
     Route: 065
  35. BISACODYL [Suspect]
     Active Substance: BISACODYL
     Dosage: UNK
     Route: 065
  36. BISACODYL [Suspect]
     Active Substance: BISACODYL
     Dosage: UNK
     Route: 065
  37. CALCIUM CARBONATE [Suspect]
     Active Substance: CALCIUM CARBONATE
     Indication: Product used for unknown indication
     Dosage: UNK, DOSAGE FORM: NOT SPECIFIED
     Route: 065
  38. CALCIUM CARBONATE\CHOLECALCIFEROL [Suspect]
     Active Substance: CALCIUM CARBONATE\CHOLECALCIFEROL
     Indication: Product used for unknown indication
     Dosage: UNK, DOSAGE FORM: NOT SPECIFIED
     Route: 065
  39. CETIRIZINE HYDROCHLORIDE [Suspect]
     Active Substance: CETIRIZINE HYDROCHLORIDE
     Indication: Product used for unknown indication
     Dosage: UNK
     Route: 065
  40. CETIRIZINE HYDROCHLORIDE [Suspect]
     Active Substance: CETIRIZINE HYDROCHLORIDE
     Dosage: UNK
     Route: 065
  41. CETIRIZINE HYDROCHLORIDE [Suspect]
     Active Substance: CETIRIZINE HYDROCHLORIDE
     Dosage: UNK
     Route: 065
  42. CHOLECALCIFEROL [Suspect]
     Active Substance: CHOLECALCIFEROL
     Indication: Product used for unknown indication
     Dosage: UNK,DOSAGE FORM: NOT SPECIFIED
     Route: 065
  43. CLARITHROMYCIN [Suspect]
     Active Substance: CLARITHROMYCIN
     Indication: Product used for unknown indication
     Dosage: UNK, DOSAGE FORM: NOT SPECIFIED
     Route: 065
  44. CLARITHROMYCIN [Suspect]
     Active Substance: CLARITHROMYCIN
     Dosage: UNK, DOSAGE FORM: NOT SPECIFIED
     Route: 065
  45. CLARITHROMYCIN [Suspect]
     Active Substance: CLARITHROMYCIN
     Dosage: UNK
     Route: 065
  46. CLOTRIMAZOLE [Suspect]
     Active Substance: CLOTRIMAZOLE
     Indication: Product used for unknown indication
     Dosage: UNK, DOSAGE FORM: NOT SPECIFIED
     Route: 065
  47. CLOTRIMAZOLE [Suspect]
     Active Substance: CLOTRIMAZOLE
     Dosage: UNK, DOSAGE FORM: NOT SPECIFIED
     Route: 065
  48. CLOTRIMAZOLE [Suspect]
     Active Substance: CLOTRIMAZOLE
     Dosage: UNK
     Route: 065
  49. CUPRIC OXIDE [Suspect]
     Active Substance: CUPRIC OXIDE
     Indication: Product used for unknown indication
     Dosage: UNK
     Route: 065
  50. .ALPHA.-TOCOPHEROL, D- [Suspect]
     Active Substance: .ALPHA.-TOCOPHEROL, D-
     Indication: Product used for unknown indication
     Dosage: UNK
     Route: 065
  51. .ALPHA.-TOCOPHEROL, D- [Suspect]
     Active Substance: .ALPHA.-TOCOPHEROL, D-
     Dosage: UNK
     Route: 065
  52. DESONIDE [Suspect]
     Active Substance: DESONIDE
     Indication: Product used for unknown indication
     Dosage: UNK, DOSAGE FORM: NOT SPECIFIED
     Route: 065
  53. DESONIDE [Suspect]
     Active Substance: DESONIDE
     Dosage: UNK, DOSAGE FORM: NOT SPECIFIED
     Route: 065
  54. DESONIDE [Suspect]
     Active Substance: DESONIDE
     Dosage: UNK
     Route: 065
  55. DILAUDID [Suspect]
     Active Substance: HYDROMORPHONE HYDROCHLORIDE
     Indication: Product used for unknown indication
     Dosage: UNK, DOSAGE FORM: NOT SPECIFIED
     Route: 065
  56. DIPHENHYDRAMINE HYDROCHLORIDE [Suspect]
     Active Substance: DIPHENHYDRAMINE HYDROCHLORIDE
     Indication: Product used for unknown indication
     Dosage: UNK, DOSAGE FORM: NOT SPECIFIED
     Route: 065
  57. DIPHENHYDRAMINE HYDROCHLORIDE [Suspect]
     Active Substance: DIPHENHYDRAMINE HYDROCHLORIDE
     Dosage: UNK
     Route: 065
  58. DIPHENHYDRAMINE HYDROCHLORIDE [Suspect]
     Active Substance: DIPHENHYDRAMINE HYDROCHLORIDE
     Dosage: UNK
     Route: 065
  59. ENTOCORT [Suspect]
     Active Substance: BUDESONIDE
     Indication: Product used for unknown indication
     Dosage: UNK, FORMULATION:CAPSULE, SUSTAINED-RELEASE
     Route: 065
  60. FLOVENT [Suspect]
     Active Substance: FLUTICASONE PROPIONATE
     Indication: Product used for unknown indication
     Dosage: UNK, DOSAGE FORM: NOT SPECIFIED
     Route: 065
  61. FRUCTOSE\GLYCERIN\SODIUM CHLORIDE [Suspect]
     Active Substance: FRUCTOSE\GLYCERIN\SODIUM CHLORIDE
     Indication: Product used for unknown indication
     Dosage: UNK
     Route: 048
  62. GRAMICIDIN\NEOMYCIN SULFATE\POLYMYXIN B SULFATE [Suspect]
     Active Substance: GRAMICIDIN\NEOMYCIN SULFATE\POLYMYXIN B SULFATE
     Indication: Product used for unknown indication
     Dosage: UNK
     Route: 065
  63. GRAMICIDIN\NEOMYCIN SULFATE\POLYMYXIN B SULFATE [Suspect]
     Active Substance: GRAMICIDIN\NEOMYCIN SULFATE\POLYMYXIN B SULFATE
     Dosage: UNK
     Route: 065
  64. HUMIRA [Suspect]
     Active Substance: ADALIMUMAB
     Indication: Product used for unknown indication
     Dosage: UNK; FORMULATION: SOLUTION SUBCUTANEOUS
     Route: 058
  65. HUMIRA [Suspect]
     Active Substance: ADALIMUMAB
     Indication: Crohn^s disease
     Dosage: UNK; FORMULATION: SOLUTION SUBCUTANEOUS
     Route: 065
  66. HUMIRA [Suspect]
     Active Substance: ADALIMUMAB
     Dosage: UNK; FORMULATION: SOLUTION SUBCUTANEOUS
     Route: 065
  67. HUMIRA [Suspect]
     Active Substance: ADALIMUMAB
     Dosage: UNK
     Route: 065
  68. HUMIRA [Suspect]
     Active Substance: ADALIMUMAB
     Dosage: UNK
     Route: 058
  69. HYDROMORPHONE HYDROCHLORIDE [Suspect]
     Active Substance: HYDROMORPHONE HYDROCHLORIDE
     Indication: Product used for unknown indication
     Dosage: UNK
     Route: 005
  70. HYDROMORPHONE HYDROCHLORIDE [Suspect]
     Active Substance: HYDROMORPHONE HYDROCHLORIDE
     Dosage: UNK
     Route: 065
  71. HYDROMORPHONE HYDROCHLORIDE [Suspect]
     Active Substance: HYDROMORPHONE HYDROCHLORIDE
     Dosage: UNK
     Route: 065
  72. HYDROMORPHONE HYDROCHLORIDE [Suspect]
     Active Substance: HYDROMORPHONE HYDROCHLORIDE
     Dosage: UNK
     Route: 065
  73. POLYETHYLENE GLYCOLS [Suspect]
     Active Substance: POLYETHYLENE GLYCOLS
     Indication: Product used for unknown indication
     Dosage: UNK
     Route: 065
  74. MAGNESIUM SULFATE [Suspect]
     Active Substance: MAGNESIUM SULFATE
     Indication: Product used for unknown indication
     Dosage: DOSAGE FORM: NOT SPECIFIED
     Route: 065
  75. METRONIDAZOLE [Suspect]
     Active Substance: METRONIDAZOLE
     Indication: Product used for unknown indication
     Dosage: UNK, DOSAGE FORM: NOT SPECIFIED
     Route: 065
  76. METRONIDAZOLE [Suspect]
     Active Substance: METRONIDAZOLE
     Dosage: UNK
     Route: 065
  77. METRONIDAZOLE [Suspect]
     Active Substance: METRONIDAZOLE
     Dosage: UNK
     Route: 065
  78. MORPHINE SULFATE [Suspect]
     Active Substance: MORPHINE SULFATE
     Indication: Product used for unknown indication
     Dosage: UNK, DOSAGE FORM: NOT SPECIFIED
     Route: 065
  79. MORPHINE SULFATE [Suspect]
     Active Substance: MORPHINE SULFATE
     Dosage: UNK
     Route: 065
  80. MORPHINE SULFATE [Suspect]
     Active Substance: MORPHINE SULFATE
     Dosage: UNK
     Route: 065
  81. MUPIROCIN CALCIUM [Suspect]
     Active Substance: MUPIROCIN CALCIUM
     Indication: Product used for unknown indication
     Dosage: UNK; DOSAGE FORM: OINTMENT TOPICAL, PRODUCT DESCRIPTION: MUPIROCIN CALCIUM DIHYDRATE
     Route: 065
  82. MUPIROCIN CALCIUM [Suspect]
     Active Substance: MUPIROCIN CALCIUM
     Dosage: UNK
     Route: 061
  83. MUPIROCIN CALCIUM [Suspect]
     Active Substance: MUPIROCIN CALCIUM
     Dosage: UNK
     Route: 065
  84. MUPIROCIN CALCIUM [Suspect]
     Active Substance: MUPIROCIN CALCIUM
     Dosage: UNK
     Route: 065
  85. NADOLOL [Suspect]
     Active Substance: NADOLOL
     Indication: Product used for unknown indication
     Dosage: UNK
     Route: 065
  86. NADOLOL [Suspect]
     Active Substance: NADOLOL
     Dosage: 40 MILLIGRAM
     Route: 065
  87. NADOLOL [Suspect]
     Active Substance: NADOLOL
     Dosage: 40 MILLIGRAM
     Route: 065
  88. NADOLOL [Suspect]
     Active Substance: NADOLOL
     Dosage: UNK
     Route: 065
  89. NADOLOL [Suspect]
     Active Substance: NADOLOL
     Dosage: UNK
     Route: 065
  90. NEOMYCIN SULFATE [Suspect]
     Active Substance: NEOMYCIN SULFATE
     Indication: Product used for unknown indication
     Dosage: UNK, DOAGE FORM: NOT SPECIFIED
     Route: 065
  91. NICODERM CQ [Suspect]
     Active Substance: NICOTINE
     Indication: Product used for unknown indication
     Dosage: UNK, DOSAGE FORM: PATCH
     Route: 065
  92. NICODERM CQ [Suspect]
     Active Substance: NICOTINE
     Dosage: UNK, DOSAGE FORM: PATCH
     Route: 065
  93. NICODERM CQ [Suspect]
     Active Substance: NICOTINE
     Dosage: UNK
     Route: 065
  94. NICODERM CQ [Suspect]
     Active Substance: NICOTINE
     Dosage: UNK
     Route: 065
  95. NICOTINE [Suspect]
     Active Substance: NICOTINE
     Indication: Product used for unknown indication
     Dosage: UNK, DOSAGE FORM: NOT SPECIFIED
     Route: 065
  96. NICOTINE [Suspect]
     Active Substance: NICOTINE
     Dosage: UNK
     Route: 065
  97. NICOTINE [Suspect]
     Active Substance: NICOTINE
     Dosage: UNK
     Route: 065
  98. NICOTINE POLACRILEX [Suspect]
     Active Substance: NICOTINE
     Indication: Product used for unknown indication
     Dosage: UNK
     Route: 065
  99. NICOTINE POLACRILEX [Suspect]
     Active Substance: NICOTINE
     Dosage: UNK
     Route: 065
  100. PANTOPRAZOLE SODIUM [Suspect]
     Active Substance: PANTOPRAZOLE SODIUM
     Indication: Product used for unknown indication
     Dosage: UNK, DOSAGE FORM: NOT SPECIFIED
     Route: 065
  101. PANTOPRAZOLE SODIUM [Suspect]
     Active Substance: PANTOPRAZOLE SODIUM
     Dosage: UNK
     Route: 065
  102. PANTOPRAZOLE SODIUM [Suspect]
     Active Substance: PANTOPRAZOLE SODIUM
     Dosage: UNK
     Route: 065
  103. PENTASA [Suspect]
     Active Substance: MESALAMINE
     Indication: Product used for unknown indication
     Dosage: DOSAGE FORM: NOT SPECIFIED
     Route: 065
  104. POLYMYXIN B SULPHATE [Suspect]
     Active Substance: POLYMYXIN B SULFATE
     Indication: Product used for unknown indication
     Dosage: UNK
     Route: 065
  105. PREDNISONE ACETATE [Suspect]
     Active Substance: PREDNISONE ACETATE
     Indication: Product used for unknown indication
     Dosage: UNK, DOSAGE FORM: NOT SPECIFIED
     Route: 065
  106. PREDNISONE ACETATE [Suspect]
     Active Substance: PREDNISONE ACETATE
     Dosage: UNK
     Route: 065
  107. PREDNISONE ACETATE [Suspect]
     Active Substance: PREDNISONE ACETATE
     Dosage: UNK
     Route: 065
  108. PREGABALIN [Suspect]
     Active Substance: PREGABALIN
     Indication: Product used for unknown indication
     Dosage: UNK
     Route: 065
  109. PREGABALIN [Suspect]
     Active Substance: PREGABALIN
     Dosage: UNK
     Route: 065
  110. PREGABALIN [Suspect]
     Active Substance: PREGABALIN
     Dosage: UNK
     Route: 065
  111. PULMICORT TURBUHALER [Suspect]
     Active Substance: BUDESONIDE
     Indication: Product used for unknown indication
     Dosage: UNK, DOSAGE FORM: NOT SPECIFIED
     Route: 065
  112. PULMICORT TURBUHALER [Suspect]
     Active Substance: BUDESONIDE
     Dosage: UNK, DOSAGE FORM: NOT SPECIFIED
  113. PULMICORT TURBUHALER [Suspect]
     Active Substance: BUDESONIDE
     Dosage: UNK, DOSAGE FORM: NOT SPECIFIED
     Route: 065
  114. REFRESH TEARS [Suspect]
     Active Substance: CARBOXYMETHYLCELLULOSE SODIUM
     Indication: Product used for unknown indication
     Dosage: UNK
     Route: 047
  115. REFRESH TEARS [Suspect]
     Active Substance: CARBOXYMETHYLCELLULOSE SODIUM
     Dosage: UNK, DOSAGE FORM: DROPS OPHTHALMIC
     Route: 047
  116. REFRESH TEARS [Suspect]
     Active Substance: CARBOXYMETHYLCELLULOSE SODIUM
     Dosage: UNK, DOSAGE FORM: DROPS OPHTHALMIC
     Route: 065
  117. SODIUM CHLORIDE [Suspect]
     Active Substance: SODIUM CHLORIDE
     Indication: Product used for unknown indication
     Dosage: UNK,DOSAGE FORM: NOT SPECIFIED, ROUTE OF ADMISNTRATION : INTRA-NASAL
     Route: 045
  118. SODIUM CHLORIDE [Suspect]
     Active Substance: SODIUM CHLORIDE
     Dosage: UNK (DOSAGE FORM: NOT SPECIFIED)
     Route: 065
  119. SULFAMETHOXAZOLE\TRIMETHOPRIM [Suspect]
     Active Substance: SULFAMETHOXAZOLE\TRIMETHOPRIM
     Indication: Product used for unknown indication
     Dosage: DOSAGE FORM: NOT SPECIFIED
     Route: 065
  120. TRIAMCINOLONE ACETONIDE [Suspect]
     Active Substance: TRIAMCINOLONE ACETONIDE
     Indication: Product used for unknown indication
     Dosage: UNK, DOSAGE FORM: SUSPENSION INTRA-ARTICULAR
     Route: 014
  121. TRIAMCINOLONE ACETONIDE [Suspect]
     Active Substance: TRIAMCINOLONE ACETONIDE
     Dosage: UNK
     Route: 065
  122. TRIAMCINOLONE ACETONIDE [Suspect]
     Active Substance: TRIAMCINOLONE ACETONIDE
     Dosage: UNK, DOSAGE FORM: SUSPENSION INTRA-ARTICULAR
     Route: 065
  123. TRIAMCINOLONE ACETONIDE [Suspect]
     Active Substance: TRIAMCINOLONE ACETONIDE
     Dosage: UNK, DOSAGE FORM: SUSPENSION INTRA-ARTICULAR
     Route: 065
  124. TRIAMCINOLONE ACETONIDE [Suspect]
     Active Substance: TRIAMCINOLONE ACETONIDE
     Dosage: UNK
     Route: 065
  125. TRIAMCINOLONE ACETONIDE [Suspect]
     Active Substance: TRIAMCINOLONE ACETONIDE
     Dosage: UNK
     Route: 065
  126. TRIAMCINOLONE ACETONIDE [Suspect]
     Active Substance: TRIAMCINOLONE ACETONIDE
     Dosage: UNK
     Route: 014
  127. TRIAMCINOLONE ACETONIDE [Suspect]
     Active Substance: TRIAMCINOLONE ACETONIDE
     Dosage: UNK
     Route: 014
  128. XANTOFYL PALMITATE [Suspect]
     Active Substance: XANTOFYL PALMITATE
     Indication: Product used for unknown indication
     Dosage: UNK
     Route: 065
  129. ZEAXANTHIN [Suspect]
     Active Substance: ZEAXANTHIN
     Indication: Product used for unknown indication
     Dosage: UNK
     Route: 065
  130. ZINC OXIDE [Suspect]
     Active Substance: ZINC OXIDE
     Indication: Product used for unknown indication
     Dosage: UNK, DOSAGE FORM: NOT SPECIFIED
     Route: 065
  131. ACETAMINOPHEN\PROPOXYPHENE HYDROCHLORIDE [Suspect]
     Active Substance: ACETAMINOPHEN\PROPOXYPHENE HYDROCHLORIDE
     Indication: Product used for unknown indication
     Dosage: UNK
     Route: 065
  132. HYDROCHLOROTHIAZIDE [Suspect]
     Active Substance: HYDROCHLOROTHIAZIDE
     Indication: Product used for unknown indication
     Dosage: UNK
     Route: 065
  133. ATROPINE SULFATE [Suspect]
     Active Substance: ATROPINE SULFATE
     Indication: Product used for unknown indication
     Dosage: DOSAGE FORM: NOT SPECIFIED
     Route: 048
  134. AZITHROMYCIN [Suspect]
     Active Substance: AZITHROMYCIN
     Indication: Product used for unknown indication
     Dosage: UNK, DOSAGE FORM: NOT SPECIFIED
     Route: 065
  135. AZITHROMYCIN [Suspect]
     Active Substance: AZITHROMYCIN
     Dosage: UNK
     Route: 065
  136. AZITHROMYCIN [Suspect]
     Active Substance: AZITHROMYCIN
     Dosage: UNK
     Route: 065
  137. BACTROBAN [Suspect]
     Active Substance: MUPIROCIN\MUPIROCIN CALCIUM
     Indication: Product used for unknown indication
     Dosage: DOSAGE FORM: NOT SPECIFIED
     Route: 065
  138. BACTROBAN [Suspect]
     Active Substance: MUPIROCIN\MUPIROCIN CALCIUM
     Dosage: UNK(DOSAGE FORM: OINTMENT TOPICAL)
     Route: 061
  139. BUDESONIDE [Suspect]
     Active Substance: BUDESONIDE
     Indication: Product used for unknown indication
     Dosage: UNK, DOSAGE FORM: NOT SPECIFIED
     Route: 065
  140. BUDESONIDE [Suspect]
     Active Substance: BUDESONIDE
     Dosage: UNK, DOSAGE FORM: NOT SPECIFIED
  141. BUDESONIDE [Suspect]
     Active Substance: BUDESONIDE
     Dosage: UNK
     Route: 065
  142. BUDESONIDE [Suspect]
     Active Substance: BUDESONIDE
     Dosage: UNK, DOSAGE FORM: NOT SPECIFIED
     Route: 048
  143. BUDESONIDE [Suspect]
     Active Substance: BUDESONIDE
     Dosage: UNK
     Route: 048
  144. MINERALS [Suspect]
     Active Substance: MINERALS
     Indication: Product used for unknown indication
     Dosage: UNK
     Route: 065
  145. MINERALS\VITAMINS [Suspect]
     Active Substance: MINERALS\VITAMINS
     Indication: Product used for unknown indication
     Dosage: UNK
     Route: 065
  146. DIPHENHYDRAMINE [Suspect]
     Active Substance: DIPHENHYDRAMINE
     Indication: Product used for unknown indication
     Dosage: UNK, DOSAGE FORM: NOT SPECIFIED
     Route: 065
  147. DIPHENHYDRAMINE [Suspect]
     Active Substance: DIPHENHYDRAMINE
     Dosage: UNK
     Route: 065
  148. .ALPHA.-TOCOPHEROL ACETATE, DL- [Suspect]
     Active Substance: .ALPHA.-TOCOPHEROL ACETATE, DL-
     Indication: Product used for unknown indication
     Dosage: UNK
     Route: 065
  149. FLUTICASONE PROPIONATE [Suspect]
     Active Substance: FLUTICASONE PROPIONATE
     Indication: Product used for unknown indication
     Dosage: UNK; DOSAGE FORM: NOT SPECIFIED
     Route: 065
  150. FLUTICASONE PROPIONATE [Suspect]
     Active Substance: FLUTICASONE PROPIONATE
     Dosage: UNK
     Route: 065
  151. GLYCERIN [Suspect]
     Active Substance: GLYCERIN
     Indication: Product used for unknown indication
     Dosage: UNK
     Route: 048
  152. GLYCERIN [Suspect]
     Active Substance: GLYCERIN
     Dosage: UNK
     Route: 065
  153. GLYCERIN [Suspect]
     Active Substance: GLYCERIN
     Dosage: UNK
     Route: 065
  154. GLYCERIN [Suspect]
     Active Substance: GLYCERIN
     Dosage: UNK
     Route: 048
  155. HABITROL [Suspect]
     Active Substance: NICOTINE
     Indication: Product used for unknown indication
     Dosage: FORMULATION: PATCH
     Route: 065
  156. HYDROCHLOROTHIAZIDE [Suspect]
     Active Substance: HYDROCHLOROTHIAZIDE
     Indication: Product used for unknown indication
     Dosage: UNK
     Route: 065
  157. HYDROCHLOROTHIAZIDE [Suspect]
     Active Substance: HYDROCHLOROTHIAZIDE
     Dosage: UNK
     Route: 005
  158. HYDROCHLOROTHIAZIDE [Suspect]
     Active Substance: HYDROCHLOROTHIAZIDE
     Dosage: 100 MILLIGRAM
     Route: 065
  159. HYDROCHLOROTHIAZIDE [Suspect]
     Active Substance: HYDROCHLOROTHIAZIDE
     Dosage: UNK
     Route: 065
  160. HYDROCHLOROTHIAZIDE [Suspect]
     Active Substance: HYDROCHLOROTHIAZIDE
     Dosage: UNK
     Route: 065
  161. KENALOG [Suspect]
     Active Substance: TRIAMCINOLONE ACETONIDE
     Indication: Product used for unknown indication
     Dosage: UNK
     Route: 065
  162. LOPERAMIDE HYDROCHLORIDE [Suspect]
     Active Substance: LOPERAMIDE HYDROCHLORIDE
     Indication: Product used for unknown indication
     Dosage: UNK
     Route: 048
  163. LOPERAMIDE [Suspect]
     Active Substance: LOPERAMIDE
     Indication: Product used for unknown indication
     Dosage: UNK
     Route: 048
  164. POLYETHYLENE GLYCOL\PROPYLENE GLYCOL\SODIUM CHLORIDE [Suspect]
     Active Substance: POLYETHYLENE GLYCOL\PROPYLENE GLYCOL\SODIUM CHLORIDE
     Indication: Product used for unknown indication
     Dosage: UNK, ROUTE OF ADMISNTRATION: INTRA-NASAL
     Route: 045
  165. MAGNESIUM [Suspect]
     Active Substance: MAGNESIUM
     Indication: Product used for unknown indication
     Dosage: DOSAGE FORM: NOT SPECIFIED
     Route: 065
  166. MESALAMINE [Suspect]
     Active Substance: MESALAMINE
     Indication: Product used for unknown indication
     Dosage: UNK, DOAGE FORM: NOT SPECIFIED
     Route: 065
  167. MESALAMINE [Suspect]
     Active Substance: MESALAMINE
     Dosage: UNK, DOAGE FORM: NOT SPECIFIED
     Route: 065
  168. MESALAMINE [Suspect]
     Active Substance: MESALAMINE
     Dosage: UNK
     Route: 065
  169. MUPIROCIN CALCIUM [Suspect]
     Active Substance: MUPIROCIN CALCIUM
     Indication: Product used for unknown indication
     Dosage: UNK
     Route: 061
  170. MUPIROCIN CALCIUM [Suspect]
     Active Substance: MUPIROCIN CALCIUM
     Dosage: UNK
     Route: 065
  171. MUPIROCIN CALCIUM [Suspect]
     Active Substance: MUPIROCIN CALCIUM
     Dosage: UNK; DOSAGE FORM: OINTMENT TOPICAL
     Route: 061
  172. SODIUM BICARBONATE\SODIUM CHLORIDE [Suspect]
     Active Substance: SODIUM BICARBONATE\SODIUM CHLORIDE
     Indication: Product used for unknown indication
     Dosage: UNK, FORMULATION: SOLUTION INTRA-NASAL
     Route: 045
  173. SODIUM BICARBONATE\SODIUM CHLORIDE [Suspect]
     Active Substance: SODIUM BICARBONATE\SODIUM CHLORIDE
     Dosage: UNK, DOSAGE FORM: SOLUTION NASAL
     Route: 065
  174. SODIUM BICARBONATE\SODIUM CHLORIDE [Suspect]
     Active Substance: SODIUM BICARBONATE\SODIUM CHLORIDE
     Dosage: UNK, DOSAGE FORM: SOLUTION NASAL
     Route: 065
  175. MORPHINE SULFATE [Suspect]
     Active Substance: MORPHINE SULFATE
     Indication: Product used for unknown indication
     Dosage: DOSAGE FORM: NOT SPECIFIED
     Route: 065
  176. VITAMIN D3 [Suspect]
     Active Substance: CHOLECALCIFEROL
     Indication: Product used for unknown indication
     Dosage: UNK
     Route: 065
  177. VITAMIN D3 [Suspect]
     Active Substance: CHOLECALCIFEROL
     Dosage: UNK
     Route: 065
  178. VITAMIN D3 [Suspect]
     Active Substance: CHOLECALCIFEROL
     Dosage: UNK
     Route: 065
  179. ASPIRIN [Suspect]
     Active Substance: ASPIRIN
     Indication: Product used for unknown indication
     Dosage: DOSAGE FORM: NOT SPECIFIED
     Route: 065
  180. FLUTICASONE FUROATE [Suspect]
     Active Substance: FLUTICASONE FUROATE
     Indication: Product used for unknown indication
     Dosage: UNK
     Route: 065
  181. FLUTICASONE FUROATE [Suspect]
     Active Substance: FLUTICASONE FUROATE
     Dosage: UNK
     Route: 065
  182. GLYCERIN [Suspect]
     Active Substance: GLYCERIN
     Indication: Product used for unknown indication
     Dosage: UNK
     Route: 065
  183. GLYCERIN [Suspect]
     Active Substance: GLYCERIN
     Dosage: UNK
     Route: 048
  184. AZITHROMYCIN ANHYDROUS [Suspect]
     Active Substance: AZITHROMYCIN ANHYDROUS
     Indication: Product used for unknown indication
     Dosage: DOSAGE FORM: NOT SPECIFIED
     Route: 065
  185. POTASSIUM CHLORIDE [Suspect]
     Active Substance: POTASSIUM CHLORIDE
     Indication: Product used for unknown indication
     Dosage: DOSAGE FORM: NOT SPECIFIED
     Route: 065
  186. CITRIC ACID MONOHYDRATE\SODIUM BICARBONATE [Suspect]
     Active Substance: CITRIC ACID MONOHYDRATE\SODIUM BICARBONATE
     Indication: Product used for unknown indication
     Dosage: DOSAGE FORM: NOT SPECIFIED
     Route: 065
  187. BETAMETHASONE SODIUM PHOSPHATE [Suspect]
     Active Substance: BETAMETHASONE SODIUM PHOSPHATE
     Indication: Product used for unknown indication
     Dosage: UNK
     Route: 065
  188. BENZYDAMINE [Suspect]
     Active Substance: BENZYDAMINE
     Indication: Product used for unknown indication
     Dosage: UNK
     Route: 065
  189. BETAMETHASONE DIPROPIONATE\BETAMETHASONE SODIUM PHOSPHATE [Suspect]
     Active Substance: BETAMETHASONE DIPROPIONATE\BETAMETHASONE SODIUM PHOSPHATE
     Indication: Product used for unknown indication
     Dosage: UNK
     Route: 065
  190. CLOBETASOL PROPIONATE\CLOTRIMAZOLE [Suspect]
     Active Substance: CLOBETASOL PROPIONATE\CLOTRIMAZOLE
     Indication: Product used for unknown indication
     Dosage: UNK
     Route: 065
  191. ERGOCALCIFEROL [Suspect]
     Active Substance: ERGOCALCIFEROL
     Indication: Product used for unknown indication
     Dosage: UNK, DOSAGE FORM: NOT SPECIFIED
     Route: 065
  192. ERTAPENEM SODIUM [Suspect]
     Active Substance: ERTAPENEM SODIUM
     Indication: Product used for unknown indication
     Dosage: UNK
     Route: 065
  193. ERTAPENEM SODIUM [Suspect]
     Active Substance: ERTAPENEM SODIUM
     Dosage: UNK
     Route: 065
  194. ERTAPENEM SODIUM [Suspect]
     Active Substance: ERTAPENEM SODIUM
     Dosage: UNK
     Route: 065
  195. ERTAPENEM SODIUM [Suspect]
     Active Substance: ERTAPENEM SODIUM
     Dosage: UNK, POWDER FOR SOLUTION INTRAMUSCULAR
     Route: 065
  196. POLYETHYLENE GLYCOL\POTASSIUM CHLORIDE\SODIUM BICARBONATE [Suspect]
     Active Substance: POLYETHYLENE GLYCOL\POTASSIUM CHLORIDE\SODIUM BICARBONATE
     Indication: Product used for unknown indication
     Dosage: UNK
     Route: 065
  197. VITAMINS NOS [Suspect]
     Active Substance: VITAMINS
     Indication: Product used for unknown indication
     Dosage: UNK
     Route: 065
  198. VALSARTAN [Suspect]
     Active Substance: VALSARTAN
     Indication: Product used for unknown indication
     Dosage: UNK, DOSAGE FORM: NOT SPECIFIED
     Route: 065
  199. VALSARTAN [Suspect]
     Active Substance: VALSARTAN
     Dosage: UNK, DOSAGE FORM: NOT SPECIFIED
     Route: 065
  200. ISONIAZID\PYRIDOXINE\SULFAMETHOXAZOLE\TRIMETHOPRIM [Suspect]
     Active Substance: ISONIAZID\PYRIDOXINE\SULFAMETHOXAZOLE\TRIMETHOPRIM
     Dosage: UNK
     Route: 065
  201. DIFENOXIN HYDROCHLORIDE [Suspect]
     Active Substance: DIFENOXIN HYDROCHLORIDE
     Indication: Product used for unknown indication
     Dosage: UNK
     Route: 048
  202. CARBOXYMETHYLCELLULOSE SODIUM [Suspect]
     Active Substance: CARBOXYMETHYLCELLULOSE SODIUM
     Indication: Product used for unknown indication
     Dosage: UNK
     Route: 047
  203. VALSARTAN [Concomitant]
     Active Substance: VALSARTAN
     Indication: Product used for unknown indication
     Dosage: UNK, DOSAGE FORM: NOT SPECIFIED
     Route: 065
  204. VALSARTAN [Concomitant]
     Active Substance: VALSARTAN
     Dosage: UNK
     Route: 065
  205. METRONIDAZOLE [Concomitant]
     Active Substance: METRONIDAZOLE
     Indication: Product used for unknown indication
     Dosage: UNK, DOSAGE FORM: NOT SPECIFIED
     Route: 065
  206. ATORVASTATIN CALCIUM [Concomitant]
     Active Substance: ATORVASTATIN CALCIUM
     Dosage: UNK, DOSAGE FORM: NOT SPECIFIED
     Route: 065
  207. SULFAMETHOXAZOLE\TRIMETHOPRIM [Suspect]
     Active Substance: SULFAMETHOXAZOLE\TRIMETHOPRIM

REACTIONS (2)
  - Drug ineffective [Unknown]
  - Macular degeneration [Unknown]
